FAERS Safety Report 8439326-3 (Version None)
Quarter: 2012Q2

REPORT INFORMATION
  Report Type: 
  Country: None (occurrence: None)
  Receive Date: 20120615
  Receipt Date: 20120612
  Transmission Date: 20120825
  Serious: Yes (Death)
  Sender: FDA-Public Use
  Company Number: VE-PFIZER INC-2012142536

PATIENT
  Sex: Female

DRUGS (2)
  1. CADUET [Concomitant]
     Dosage: UNK
  2. LIPITOR [Suspect]
     Dosage: 20 MG, UNK

REACTIONS (1)
  - DEATH [None]
